FAERS Safety Report 4369784-5 (Version None)
Quarter: 2004Q2

REPORT INFORMATION
  Report Type: 
  Country: None (occurrence: None)
  Receive Date: 20040528
  Receipt Date: 20040513
  Transmission Date: 20050107
  Serious: Yes (Other)
  Sender: FDA-Public Use
  Company Number: 2004214274US

PATIENT
  Sex: Female

DRUGS (4)
  1. HEPARIN SODIUM INJECTION [Suspect]
     Indication: ANTIPHOSPHOLIPID SYNDROME
     Dosage: SEE IMAGE
  2. CLOBESTERAL (CREAM) [Suspect]
     Indication: EXANTHEM
  3. PREDNISOLONE [Suspect]
     Indication: EXANTHEM
     Dosage: 20 MG, QD
     Route: 061
  4. CYCLOCORT(AMCINONIDE) [Suspect]
     Indication: EXANTHEM
     Dosage: TOPICAL
     Route: 061

REACTIONS (2)
  - DRUG EXPOSURE DURING PREGNANCY [None]
  - PREMATURE BABY [None]
